FAERS Safety Report 10701677 (Version 2)
Quarter: 2015Q1

REPORT INFORMATION
  Report Type: Spontaneous
  Country: US (occurrence: US)
  Receive Date: 20150109
  Receipt Date: 20150118
  Transmission Date: 20150721
  Serious: Yes (Death)
  Sender: FDA-Public Use
  Company Number: US-ASTRAZENECA-2015SE00742

PATIENT
  Sex: Female
  Weight: 4 kg

DRUGS (3)
  1. SYNAGIS [Suspect]
     Active Substance: PALIVIZUMAB
     Indication: HYPOPLASTIC LEFT HEART SYNDROME
     Dosage: 100 MG/1 ML; 15 MG/KG MONTHLY
     Route: 030
     Dates: start: 20141016
  2. SYNAGIS [Suspect]
     Active Substance: PALIVIZUMAB
     Indication: SEPSIS
     Dosage: 100 MG/1 ML; 15 MG/KG MONTHLY
     Route: 030
     Dates: start: 20141016
  3. SYNAGIS [Suspect]
     Active Substance: PALIVIZUMAB
     Indication: PREMATURE BABY
     Dosage: 100 MG/1 ML; 15 MG/KG MONTHLY
     Route: 030
     Dates: start: 20141016

REACTIONS (1)
  - Hypoxia [Fatal]
